FAERS Safety Report 21178929 (Version 1)
Quarter: 2022Q3

REPORT INFORMATION
  Report Type: Spontaneous
  Country: US (occurrence: None)
  Receive Date: 20220804
  Receipt Date: 20220804
  Transmission Date: 20221026
  Serious: Yes (Hospitalization)
  Sender: FDA-Public Use
  Company Number: None

PATIENT
  Age: 64 Year
  Sex: Female

DRUGS (1)
  1. CAPECITABINE [Suspect]
     Active Substance: CAPECITABINE
     Indication: Product used for unknown indication
     Dosage: 500MG OHER ORAL
     Route: 048

REACTIONS (2)
  - Upper gastrointestinal haemorrhage [None]
  - Tremor [None]

NARRATIVE: CASE EVENT DATE: 20220804
